FAERS Safety Report 7778501-8 (Version None)
Quarter: 2011Q3

REPORT INFORMATION
  Report Type: 
  Country: None (occurrence: None)
  Receive Date: 20110926
  Receipt Date: 20110921
  Transmission Date: 20111222
  Serious: Yes (Other)
  Sender: FDA-Public Use
  Company Number: PHHY2011CA73092

PATIENT
  Sex: Female

DRUGS (4)
  1. CALCIUM CARBONATE [Concomitant]
     Dosage: 500 MG, BID
  2. ZOLEDRONOC ACID [Suspect]
     Indication: OSTEOPOROSIS
     Dosage: 5 MG, UNK
     Route: 017
     Dates: start: 20100901
  3. VITAMIN D [Concomitant]
     Dosage: 10000 IU, UNK
  4. PANTOPRAZOLE SODIUM [Concomitant]
     Dosage: 20 MG, BID

REACTIONS (4)
  - HYPOKINESIA [None]
  - PAIN [None]
  - MYALGIA [None]
  - NAUSEA [None]
